FAERS Safety Report 11632354 (Version 1)
Quarter: 2015Q4

REPORT INFORMATION
  Report Type: Spontaneous
  Country: US (occurrence: US)
  Receive Date: 20151015
  Receipt Date: 20151015
  Transmission Date: 20160304
  Serious: Yes (Hospitalization)
  Sender: FDA-Public Use
  Company Number: US-WEST-WARD PHARMACEUTICALS CORP.-US-H14001-15-01778

PATIENT
  Age: 56 Year
  Sex: Female

DRUGS (4)
  1. DURAMORPH [Suspect]
     Active Substance: MORPHINE SULFATE
     Indication: PAIN
  2. CLONIDINE. [Suspect]
     Active Substance: CLONIDINE
     Indication: COMPLEX REGIONAL PAIN SYNDROME
     Route: 037
  3. DURAMORPH [Suspect]
     Active Substance: MORPHINE SULFATE
     Indication: COMPLEX REGIONAL PAIN SYNDROME
     Route: 037
  4. BUPIVACAINE [Suspect]
     Active Substance: BUPIVACAINE
     Indication: COMPLEX REGIONAL PAIN SYNDROME
     Route: 037

REACTIONS (7)
  - Pain [Unknown]
  - Burning sensation [Unknown]
  - Skin discolouration [Unknown]
  - Groin pain [Unknown]
  - Tremor [Unknown]
  - Catheter site pain [Unknown]
  - Accidental underdose [Recovered/Resolved]

NARRATIVE: CASE EVENT DATE: 201509
